FAERS Safety Report 6729764-9 (Version None)
Quarter: 2010Q2

REPORT INFORMATION
  Report Type: 
  Country: None (occurrence: None)
  Receive Date: 20100518
  Receipt Date: 20100510
  Transmission Date: 20101027
  Serious: No
  Sender: FDA-Public Use
  Company Number: DE-ASTRAZENECA-2010SE21114

PATIENT
  Age: 11614 Day
  Sex: Male

DRUGS (2)
  1. SEROQUEL XR [Suspect]
     Indication: BIPOLAR DISORDER
     Route: 048
     Dates: start: 20091007, end: 20100225
  2. VALPORAT [Interacting]
     Indication: BIPOLAR DISORDER
     Route: 048

REACTIONS (3)
  - DRUG INTERACTION [None]
  - LEUKOPENIA [None]
  - THROMBOCYTOPENIA [None]
